FAERS Safety Report 13447895 (Version 2)
Quarter: 2018Q1

REPORT INFORMATION
  Report Type: Spontaneous
  Country: CH (occurrence: FR)
  Receive Date: 20170417
  Receipt Date: 20180124
  Transmission Date: 20180508
  Serious: Yes (Hospitalization)
  Sender: FDA-Public Use
  Company Number: CH-LPDUSPRD-20170428

PATIENT
  Age: 73 Year
  Sex: Male

DRUGS (13)
  1. VENOFER [Suspect]
     Active Substance: IRON SUCROSE
     Dosage: 300 MG
     Route: 065
     Dates: start: 20160322
  2. JANUVIA [Concomitant]
     Active Substance: SITAGLIPTIN PHOSPHATE
  3. COUMADINE [Concomitant]
     Active Substance: WARFARIN SODIUM
  4. VELPHORO [Suspect]
     Active Substance: FERRIC OXYHYDROXIDE
     Dosage: 1000 MG
     Route: 048
     Dates: start: 20160707
  5. PANTOPRAZOLE [Concomitant]
     Active Substance: PANTOPRAZOLE
  6. RENVELA [Concomitant]
     Active Substance: SEVELAMER CARBONATE
  7. DIAMICRON [Concomitant]
     Active Substance: GLICLAZIDE
  8. RAMIPRIL. [Concomitant]
     Active Substance: RAMIPRIL
  9. RILMENIDINE [Concomitant]
     Active Substance: RILMENIDINE
  10. CADUET [Concomitant]
     Active Substance: AMLODIPINE BESYLATE\ATORVASTATIN CALCIUM
  11. LASILIX [Concomitant]
     Active Substance: FUROSEMIDE
  12. MIRCERA [Suspect]
     Active Substance: METHOXY POLYETHYLENE GLYCOL-EPOETIN BETA
     Dosage: 75 MCG
     Dates: start: 20151217, end: 20160606
  13. ZYMAD [Concomitant]
     Active Substance: CHOLECALCIFEROL

REACTIONS (1)
  - Gastroenteritis [Recovered/Resolved]

NARRATIVE: CASE EVENT DATE: 20160828
